FAERS Safety Report 4927741-1 (Version None)
Quarter: 2006Q1

REPORT INFORMATION
  Report Type: 
  Country: None (occurrence: None)
  Receive Date: 20060222
  Receipt Date: 20060206
  Transmission Date: 20060701
  Serious: Yes (Other)
  Sender: FDA-Public Use
  Company Number: TRP_0704_2006

PATIENT
  Age: 52 Year
  Sex: Female

DRUGS (7)
  1. RIBASPHERE/RIBAVIRIN/THREE RIVERS PHARMA/200 MG [Suspect]
     Indication: HEPATITIS C
     Dosage: DF PO
     Route: 048
     Dates: start: 20041108, end: 20051114
  2. PEG-INTRON [Suspect]
     Indication: HEPATITIS C
     Dosage: DF, SC
     Route: 058
     Dates: start: 20041108, end: 20051114
  3. DIOVAN HCT [Concomitant]
  4. HUMULIN 70/30 [Concomitant]
  5. NEXIUM [Concomitant]
  6. PREMARIN [Concomitant]
  7. DIOVAN HCT [Concomitant]

REACTIONS (5)
  - CATARACT [None]
  - GLAUCOMA [None]
  - INSOMNIA [None]
  - RETINAL HAEMORRHAGE [None]
  - VISUAL FIELD DEFECT [None]
